FAERS Safety Report 6335324-4 (Version None)
Quarter: 2009Q3

REPORT INFORMATION
  Report Type: 
  Country: None (occurrence: None)
  Receive Date: 20090827
  Receipt Date: 20090819
  Transmission Date: 20100115
  Serious: Yes (Hospitalization)
  Sender: FDA-Public Use
  Company Number: GXKR2009FI08710

PATIENT
  Age: 55 Year
  Sex: Female

DRUGS (4)
  1. SIMVASTATIN [Suspect]
     Dosage: 20 MG/DAY ; 40 MG/DAY
     Dates: start: 20070101
  2. REUMACON (DEMETHYL PODOPHYLLOTOXIN BENZYLIDENE GLUCOSID, PODOPHYLLOTOX [Suspect]
     Indication: RHEUMATOID ARTHRITIS
     Dates: start: 20060501
  3. AZATHIOPRINE [Concomitant]
  4. RITUXIMAB (RITUXIMAB) [Concomitant]

REACTIONS (3)
  - ALANINE AMINOTRANSFERASE INCREASED [None]
  - DRUG INTERACTION [None]
  - RHABDOMYOLYSIS [None]
